FAERS Safety Report 9128951 (Version 1)
Quarter: 2013Q1

REPORT INFORMATION
  Report Type: Spontaneous
  Country: US (occurrence: US)
  Receive Date: 20130125
  Receipt Date: 20130125
  Transmission Date: 20140127
  Serious: No
  Sender: FDA-Public Use
  Company Number: US-ASTRAZENECA-2009UW01625

PATIENT
  Age: 73 Year
  Sex: Female
  Weight: 83 kg

DRUGS (6)
  1. PULMICORT RESPULES [Suspect]
     Indication: LUNG DISORDER
     Dosage: GENERIC BUDESONIDE, BID
     Route: 055
  2. SYMBICORT [Suspect]
     Indication: ASTHMA
     Dosage: 160/4.5 UG, 2 PUFFS, BID
     Route: 055
     Dates: start: 20081030
  3. XOPENEX [Concomitant]
     Indication: ASTHMA
  4. DIOVAN [Concomitant]
     Indication: HYPERTENSION
  5. NASONEX [Concomitant]
     Indication: MULTIPLE ALLERGIES
  6. ASTELIN [Concomitant]
     Indication: MULTIPLE ALLERGIES

REACTIONS (4)
  - Tremor [Not Recovered/Not Resolved]
  - Anxiety [Unknown]
  - Drug ineffective for unapproved indication [Not Recovered/Not Resolved]
  - Off label use [Unknown]
